FAERS Safety Report 4970211-5 (Version None)
Quarter: 2006Q2

REPORT INFORMATION
  Report Type: 
  Country: None (occurrence: None)
  Receive Date: 20060406
  Receipt Date: 20051129
  Transmission Date: 20061013
  Serious: Yes (Other)
  Sender: FDA-Public Use
  Company Number: F03200600059

PATIENT

DRUGS (3)
  1. ELOXATIN [Suspect]
     Indication: NEOPLASM MALIGNANT
     Dosage: INTRAVENOUS NOS
     Route: 042
  2. FLUOROURACIL [Suspect]
     Indication: NEOPLASM MALIGNANT
     Dosage: INTRAVENOUS NOS
     Route: 042
  3. LEUCOVORIN CALCIUM [Suspect]
     Indication: NEOPLASM MALIGNANT
     Dosage: INTRAVENOUS NOS
     Route: 042

REACTIONS (1)
  - CARDIOMYOPATHY [None]
